FAERS Safety Report 6834263-X (Version None)
Quarter: 2010Q3

REPORT INFORMATION
  Report Type: 
  Country: None (occurrence: None)
  Receive Date: 20100712
  Receipt Date: 20070604
  Transmission Date: 20110219
  Serious: Yes (Other)
  Sender: FDA-Public Use
  Company Number: US-PFIZER INC-2007023938

PATIENT
  Sex: Female
  Weight: 81.6 kg

DRUGS (8)
  1. CHANTIX [Suspect]
     Indication: SMOKING CESSATION THERAPY
     Route: 048
     Dates: start: 20070313
  2. UNDEFINED INSULIN [Concomitant]
  3. AVAPRO [Concomitant]
     Indication: HYPERTENSION
  4. LEXAPRO [Concomitant]
  5. ALL OTHER THERAPEUTIC PRODUCTS [Concomitant]
  6. LEVOXYL [Concomitant]
     Indication: THYROID DISORDER
  7. PHENTERMINE [Concomitant]
  8. NORCO [Concomitant]
     Indication: PAIN

REACTIONS (7)
  - ACTIVITIES OF DAILY LIVING IMPAIRED [None]
  - ASTHENIA [None]
  - CRYING [None]
  - EXERCISE LACK OF [None]
  - FATIGUE [None]
  - HYPERSENSITIVITY [None]
  - ORAL DISORDER [None]
